FAERS Safety Report 20478802 (Version 1)
Quarter: 2022Q1

REPORT INFORMATION
  Report Type: Spontaneous
  Country: CN (occurrence: CN)
  Receive Date: 20220216
  Receipt Date: 20220216
  Transmission Date: 20220424
  Serious: Yes (Hospitalization)
  Sender: FDA-Public Use
  Company Number: CN-BAXTER-2022BAX003240

PATIENT
  Age: 67 Year
  Sex: Male
  Weight: 60 kg

DRUGS (5)
  1. CYCLOPHOSPHAMIDE [Suspect]
     Active Substance: CYCLOPHOSPHAMIDE
     Indication: Breast cancer male
     Dosage: CYCLOPHOSPHAMIDE 0.98G + 0.9% NS 200ML; FIRST CYCLE CHEMOTHERAPY
     Route: 041
     Dates: start: 20220124, end: 20220125
  2. SODIUM CHLORIDE [Suspect]
     Active Substance: SODIUM CHLORIDE
     Indication: Medication dilution
     Dosage: CYCLOPHOSPHAMIDE 0.98G + 0.9% NS 200ML; FIRST CYCLE CHEMOTHERAPY
     Route: 041
     Dates: start: 20220124, end: 20220125
  3. SODIUM CHLORIDE [Suspect]
     Active Substance: SODIUM CHLORIDE
     Dosage: PACLITAXEL 0.4 G + 0.9% NS 80ML; FIRST CYCLE CHEMOTHERAPY
     Route: 041
     Dates: start: 20220124, end: 20220125
  4. PACLITAXEL [Suspect]
     Active Substance: PACLITAXEL
     Indication: Breast cancer male
     Dosage: PACLITAXEL 0.4 G + 0.9% NS 80ML; FIRST CYCLE CHEMOTHERAPY
     Route: 041
     Dates: start: 20220124, end: 20220125
  5. PEGYLATED RECOMBINANT HUMAN GRANULOCYTE COLONY-STIMULATING FACTOR [Concomitant]
     Indication: Myelosuppression
     Route: 058
     Dates: start: 20220127

REACTIONS (1)
  - Myelosuppression [Recovering/Resolving]

NARRATIVE: CASE EVENT DATE: 20220130
